FAERS Safety Report 25265250 (Version 1)
Quarter: 2025Q2

REPORT INFORMATION
  Report Type: Spontaneous
  Country: FR (occurrence: FR)
  Receive Date: 20250502
  Receipt Date: 20250502
  Transmission Date: 20250717
  Serious: Yes (Other)
  Sender: MYLAN
  Company Number: None

PATIENT
  Age: 83 Year
  Sex: Male
  Weight: 69 kg

DRUGS (10)
  1. VORICONAZOLE [Suspect]
     Active Substance: VORICONAZOLE
     Indication: Osteitis
     Dosage: 250 MILLIGRAM, BID
     Dates: start: 20250326
  2. LINEZOLID [Suspect]
     Active Substance: LINEZOLID
     Indication: Osteitis
     Dosage: 600 MILLIGRAM, BID
     Dates: start: 20250326
  3. PIPERACILLIN SODIUM [Suspect]
     Active Substance: PIPERACILLIN SODIUM
     Indication: Osteitis
     Dosage: 4 GRAM, Q8H
     Dates: start: 20250326
  4. TAZOBACTAM SODIUM [Suspect]
     Active Substance: TAZOBACTAM SODIUM
     Indication: Osteitis
     Dosage: 1.5 GRAM, Q8H
     Dates: start: 20250326
  5. APIXABAN [Concomitant]
     Active Substance: APIXABAN
  6. INNOHEP [Concomitant]
     Active Substance: TINZAPARIN SODIUM
  7. ATORVASTATIN [Concomitant]
     Active Substance: ATORVASTATIN
  8. BISOPROLOL FUMARATE [Concomitant]
     Active Substance: BISOPROLOL FUMARATE
  9. FUROSEMIDE [Concomitant]
     Active Substance: FUROSEMIDE
  10. DAPAGLIFLOZIN [Concomitant]
     Active Substance: DAPAGLIFLOZIN

REACTIONS (3)
  - Nightmare [Not Recovered/Not Resolved]
  - Hallucination, visual [Recovered/Resolved]
  - Acute kidney injury [Not Recovered/Not Resolved]

NARRATIVE: CASE EVENT DATE: 20250329
